FAERS Safety Report 6305599-6 (Version None)
Quarter: 2009Q3

REPORT INFORMATION
  Report Type: 
  Country: None (occurrence: None)
  Receive Date: 20090806
  Receipt Date: 20090727
  Transmission Date: 20100115
  Serious: Yes (Hospitalization)
  Sender: FDA-Public Use
  Company Number: 2009SP009273

PATIENT
  Age: 44 Year
  Sex: Female
  Weight: 36 kg

DRUGS (13)
  1. RIBAVIRIN [Suspect]
     Indication: HEPATITIS C
     Dosage: ;PO, 200 MG;QD;PO
     Route: 048
     Dates: start: 20080509, end: 20090113
  2. RIBAVIRIN [Suspect]
     Indication: HEPATITIS C
     Dosage: ;PO, 200 MG;QD;PO
     Route: 048
     Dates: start: 20090122, end: 20090210
  3. INTERFERON [Suspect]
     Indication: HEPATITIS C
     Dosage: ;IV, ;TIW;, ;TIW;
     Route: 042
     Dates: end: 20090113
  4. INTERFERON [Suspect]
     Indication: HEPATITIS C
     Dosage: ;IV, ;TIW;, ;TIW;
     Route: 042
     Dates: start: 20090122, end: 20090206
  5. INTERFERON [Suspect]
     Indication: HEPATITIS C
     Dosage: ;IV, ;TIW;, ;TIW;
     Route: 042
     Dates: start: 20080509
  6. ALFAROL [Concomitant]
  7. BONALON [Concomitant]
  8. RESLIN [Concomitant]
  9. MYSLEE [Concomitant]
  10. FAMOTIDINE [Concomitant]
  11. OMEPRAZOLE [Concomitant]
  12. FERROMIA [Concomitant]
  13. BIOFERMIN [Concomitant]

REACTIONS (4)
  - HAEMOGLOBIN DECREASED [None]
  - HYPOTHYROIDISM [None]
  - OEDEMA [None]
  - WEIGHT DECREASED [None]
